FAERS Safety Report 8948164 (Version 1)
Quarter: 2012Q4

REPORT INFORMATION
  Report Type: Spontaneous
  Country: FR (occurrence: None)
  Receive Date: 20121126
  Receipt Date: 20121126
  Transmission Date: 20130627
  Serious: Yes (Other)
  Sender: FDA-Public Use
  Company Number: 1493291

PATIENT
  Age: 83 Year
  Sex: Male

DRUGS (1)
  1. PACLITAXEL [Suspect]
     Indication: LUNG CANCER

REACTIONS (6)
  - Weight decreased [None]
  - Vomiting [None]
  - General physical health deterioration [None]
  - Dehydration [None]
  - Bradyarrhythmia [None]
  - Cardio-respiratory arrest [None]
